FAERS Safety Report 9410200 (Version 1)
Quarter: 2013Q3

REPORT INFORMATION
  Report Type: Spontaneous
  Country: US (occurrence: US)
  Receive Date: 20130719
  Receipt Date: 20130719
  Transmission Date: 20140515
  Serious: No
  Sender: FDA-Public Use
  Company Number: US-US-EMD SERONO, INC.-7035315

PATIENT
  Age: 30 Year
  Sex: Female
  Weight: 66 kg

DRUGS (3)
  1. REBIF [Suspect]
     Indication: MULTIPLE SCLEROSIS
     Route: 058
     Dates: start: 20100130, end: 20101129
  2. LEXAPRO [Concomitant]
     Indication: DEPRESSION
     Dates: start: 200910, end: 20101130
  3. LEXAPRO [Concomitant]
     Indication: MULTIPLE SCLEROSIS

REACTIONS (5)
  - Urinary tract infection [Unknown]
  - Dehydration [Unknown]
  - Vomiting in pregnancy [Unknown]
  - Live birth [Recovered/Resolved]
  - Maternal exposure timing unspecified [Recovered/Resolved]
